FAERS Safety Report 9209575 (Version 1)
Quarter: 2013Q1

REPORT INFORMATION
  Report Type: Spontaneous
  Country: US (occurrence: None)
  Receive Date: 20120820
  Receipt Date: 20120820
  Transmission Date: 20140127
  Serious: No
  Sender: FDA-Public Use
  Company Number: 1000030440

PATIENT
  Age: 46 Year
  Sex: Female

DRUGS (3)
  1. VIIBRYD [Suspect]
     Indication: DEPRESSION
     Route: 048
     Dates: start: 201204, end: 201205
  2. ALPRAZOLAM(ALPRAZOLAM)(ALPRAZOLAM) [Concomitant]
  3. AMBIEN(ZOLPIDEM TARTRATE)(ZOLPIDEM TARTRATE) [Concomitant]

REACTIONS (1)
  - Nightmare [None]
